FAERS Safety Report 8586411-1 (Version None)
Quarter: 2012Q3

REPORT INFORMATION
  Report Type: 
  Country: None (occurrence: None)
  Receive Date: 20120810
  Receipt Date: 20120613
  Transmission Date: 20120928
  Serious: Yes (Other)
  Sender: FDA-Public Use
  Company Number: JP-009507513-1208JPN004430

PATIENT

DRUGS (19)
  1. PEG-INTRON [Suspect]
     Dosage: 0.5MCG/KG/WEEK
     Route: 058
     Dates: start: 20120330
  2. PEG-INTRON [Suspect]
     Dosage: 1.0MCG/KG/WEEK
     Route: 058
     Dates: start: 20120316, end: 20120329
  3. TELAVIC [Suspect]
     Route: 048
     Dates: start: 20120323, end: 20120330
  4. PEG-INTRON [Suspect]
     Dosage: 0.45MCG/KG/WEEK
     Route: 058
     Dates: start: 20120511, end: 20120518
  5. REBETOL [Suspect]
     Indication: HEPATITIS C
     Route: 048
     Dates: start: 20120216, end: 20120315
  6. TELAVIC [Suspect]
     Indication: HEPATITIS C
     Route: 048
     Dates: start: 20120216, end: 20120322
  7. REVOLADE [Concomitant]
     Indication: IDIOPATHIC THROMBOCYTOPENIC PURPURA
     Route: 048
     Dates: end: 20120510
  8. REBETOL [Suspect]
     Route: 048
     Dates: start: 20120512
  9. TELAVIC [Suspect]
     Route: 048
     Dates: start: 20120406, end: 20120510
  10. PEG-INTRON [Suspect]
     Dosage: 1.1MCG/KG/WEEK
     Route: 058
     Dates: start: 20120302, end: 20120315
  11. PEG-INTRON [Suspect]
     Dosage: 0.45MCG/KG/WEEK
     Route: 058
     Dates: start: 20120330, end: 20120406
  12. PEG-INTRON [Suspect]
     Dosage: 0.75MCG/KG/WEEK
     Route: 058
     Dates: start: 20120420, end: 20120504
  13. REBETOL [Suspect]
     Route: 048
     Dates: start: 20120316, end: 20120322
  14. REBETOL [Suspect]
     Route: 048
     Dates: start: 20120323, end: 20120330
  15. REBETOL [Suspect]
     Route: 048
     Dates: start: 20120406, end: 20120511
  16. CONFATANIN [Concomitant]
     Indication: PROPHYLAXIS
     Dosage: SINGLE USE
     Route: 048
     Dates: start: 20120216, end: 20120519
  17. PEG-INTRON [Suspect]
     Indication: HEPATITIS C
     Dosage: 1.5MCG/KG/WEEK
     Route: 058
     Dates: start: 20120216, end: 20120301
  18. PEG-INTRON [Suspect]
     Dosage: 0.6MCG/KG/WEEK
     Route: 058
     Dates: start: 20120413, end: 20120413
  19. REVOLADE [Concomitant]
     Route: 048
     Dates: start: 20120511

REACTIONS (4)
  - HYPERURICAEMIA [None]
  - GOUT [None]
  - HAEMOGLOBIN DECREASED [None]
  - PLATELET COUNT DECREASED [None]
